FAERS Safety Report 22318281 (Version 1)
Quarter: 2023Q2

REPORT INFORMATION
  Report Type: Spontaneous
  Country: ES (occurrence: ES)
  Receive Date: 20230515
  Receipt Date: 20230515
  Transmission Date: 20230721
  Serious: Yes (Hospitalization, Other)
  Sender: FDA-Public Use
  Company Number: None

PATIENT
  Age: 94 Year
  Sex: Male

DRUGS (19)
  1. CLONAZEPAM [Interacting]
     Active Substance: CLONAZEPAM
     Indication: Agitation
     Dosage: ACCORDING TO ELECTRONIC CARD, PREVIOUSLY 0-0-0.5 ?DAILY DOSE: 1 MILLIGRAM
     Route: 048
     Dates: start: 2022, end: 20230418
  2. CLONAZEPAM [Interacting]
     Active Substance: CLONAZEPAM
     Indication: Agitation
     Dosage: 0-0-1?DAILY DOSE: 2 MILLIGRAM
     Route: 048
     Dates: start: 20230419
  3. OMEPRAZOLE [Suspect]
     Active Substance: OMEPRAZOLE
     Dosage: 1-0-1, BID
  4. QUETIAPINE [Interacting]
     Active Substance: QUETIAPINE
     Dosage: 0-0-1, ACCORDING TO E-CARD
     Route: 048
     Dates: start: 20230208
  5. BUPRENORPHINE [Interacting]
     Active Substance: BUPRENORPHINE
     Indication: Pain
     Dosage: ACCORDING TO E-CARD, 35MCG EVERY 72H
     Route: 062
     Dates: start: 20230419
  6. ZALDIAR [Interacting]
     Active Substance: ACETAMINOPHEN\TRAMADOL HYDROCHLORIDE
     Indication: Pain
     Dosage: DAILY DOSE: 3 DOSAGE FORM
     Route: 048
     Dates: start: 2022, end: 20230407
  7. ZALDIAR [Interacting]
     Active Substance: ACETAMINOPHEN\TRAMADOL HYDROCHLORIDE
     Indication: Pain
     Dosage: 2-2-2?DAILY DOSE: 6 DOSAGE FORM
     Route: 048
     Dates: start: 20230408, end: 20230424
  8. HALOPERIDOL [Interacting]
     Active Substance: HALOPERIDOL
     Indication: Agitation
     Dosage: 0-0-50 (5-10-35 AND 5-10-50)?DAILY DOSE: 50 DROP
     Route: 048
     Dates: start: 20230419, end: 20230424
  9. EPLERENONE [Suspect]
     Active Substance: EPLERENONE
     Dosage: 0-0-1
  10. FUROSEMIDE [Suspect]
     Active Substance: FUROSEMIDE
     Dosage: 1-1-0, BID
  11. EDOXABAN TOSYLATE [Suspect]
     Active Substance: EDOXABAN TOSYLATE
     Dosage: 1-0-0
  12. METOPROLOL [Suspect]
     Active Substance: METOPROLOL
     Dosage: 1-0-0.5
  13. DUTASTERIDE\TAMSULOSIN [Suspect]
     Active Substance: DUTASTERIDE\TAMSULOSIN
     Dosage: 0-0-1 (RECENTLY DISCONTINUED)
  14. LEVOTHYROXINE SODIUM [Suspect]
     Active Substance: LEVOTHYROXINE SODIUM
     Dosage: FASTING TABLET
  15. CALCIFEDIOL [Suspect]
     Active Substance: CALCIFEDIOL
     Dosage: AMPOULE
  16. METAMIZOLE [Suspect]
     Active Substance: METAMIZOLE
     Dosage: 1-1-1, TID
  17. MOVICOL [Suspect]
     Active Substance: POLYETHYLENE GLYCOL 3350\POTASSIUM CHLORIDE\SODIUM BICARBONATE\SODIUM CHLORIDE
     Dosage: 1-0-1, BID
  18. MOVICOL [Suspect]
     Active Substance: POLYETHYLENE GLYCOL 3350\POTASSIUM CHLORIDE\SODIUM BICARBONATE\SODIUM CHLORIDE
     Dosage: 1-0-0
  19. ACETAMINOPHEN [Suspect]
     Active Substance: ACETAMINOPHEN
     Dosage: 1-1-1, TID
     Dates: start: 20150210

REACTIONS (5)
  - Depressed level of consciousness [Recovered/Resolved]
  - Pneumonia aspiration [Recovering/Resolving]
  - Acute kidney injury [Unknown]
  - Urinary tract infection [Unknown]
  - Toxicity to various agents [Unknown]

NARRATIVE: CASE EVENT DATE: 20230423
